FAERS Safety Report 5576388-5 (Version None)
Quarter: 2007Q4

REPORT INFORMATION
  Report Type: 
  Country: None (occurrence: None)
  Receive Date: 20071228
  Receipt Date: 20071218
  Transmission Date: 20080405
  Serious: Yes (Hospitalization)
  Sender: FDA-Public Use
  Company Number: CA-BAYER-200716632NA

PATIENT
  Age: 33 Year
  Sex: Male
  Weight: 73 kg

DRUGS (2)
  1. BETASERON [Suspect]
     Indication: MULTIPLE SCLEROSIS
     Dosage: TOTAL DAILY DOSE: 4 MIU
     Route: 058
     Dates: start: 20071119
  2. TYLENOL [Concomitant]
     Route: 048

REACTIONS (7)
  - ANOREXIA [None]
  - BALANCE DISORDER [None]
  - DIZZINESS [None]
  - FEELING COLD [None]
  - FLUSHING [None]
  - TREMOR [None]
  - VOMITING [None]
